FAERS Safety Report 12654020 (Version 1)
Quarter: 2016Q3

REPORT INFORMATION
  Report Type: Spontaneous
  Country: US (occurrence: US)
  Receive Date: 20160816
  Receipt Date: 20160816
  Transmission Date: 20161109
  Serious: Yes (Other)
  Sender: FDA-Public Use
  Company Number: US-ACCORD-043050

PATIENT
  Age: 22 Year
  Sex: Male

DRUGS (1)
  1. ESCITALOPRAM [Suspect]
     Active Substance: ESCITALOPRAM OXALATE
     Indication: DEPRESSION
     Dosage: STARTED AT 10 MG,?20 MG PILL TO REACH PRESCRIBED DOSES
     Dates: start: 201502

REACTIONS (4)
  - Drug ineffective [Unknown]
  - Somnolence [Unknown]
  - Violence-related symptom [Unknown]
  - Headache [Unknown]
